FAERS Safety Report 16581436 (Version 2)
Quarter: 2019Q3

REPORT INFORMATION
  Report Type: Spontaneous
  Country: US (occurrence: US)
  Receive Date: 20190716
  Receipt Date: 20190815
  Transmission Date: 20191004
  Serious: No
  Sender: FDA-Public Use
  Company Number: US-009507513-1907USA010380

PATIENT
  Sex: Female
  Weight: 94.79 kg

DRUGS (1)
  1. NEXPLANON [Suspect]
     Active Substance: ETONOGESTREL
     Indication: CONTRACEPTION
     Dosage: 1IMPLANT
     Route: 059
     Dates: start: 20161102, end: 20190712

REACTIONS (2)
  - Feeling abnormal [Unknown]
  - Device breakage [Recovered/Resolved]
